FAERS Safety Report 6904340-3 (Version None)
Quarter: 2010Q3

REPORT INFORMATION
  Report Type: 
  Country: None (occurrence: None)
  Receive Date: 20100804
  Receipt Date: 20090501
  Transmission Date: 20110219
  Serious: Yes (Other)
  Sender: FDA-Public Use
  Company Number: US-PFIZER INC-2009208069

PATIENT
  Sex: Male
  Weight: 99.773 kg

DRUGS (2)
  1. LYRICA [Suspect]
     Indication: SCAR
  2. ALL OTHER THERAPEUTIC PRODUCTS [Concomitant]
     Dosage: UNK

REACTIONS (1)
  - DEPRESSION [None]
